FAERS Safety Report 8003915-0 (Version None)
Quarter: 2011Q4

REPORT INFORMATION
  Report Type: 
  Country: None (occurrence: None)
  Receive Date: 20111222
  Receipt Date: 20081026
  Transmission Date: 20120403
  Serious: Yes (Other)
  Sender: FDA-Public Use
  Company Number: PL-SANTEN INC.-INC-11-000189

PATIENT

DRUGS (1)
  1. TIMOLOL MALEATE [Suspect]
     Route: 047

REACTIONS (1)
  - CHOROIDAL DETACHMENT [None]
